APPROVED DRUG PRODUCT: DOXORUBICIN HYDROCHLORIDE
Active Ingredient: DOXORUBICIN HYDROCHLORIDE
Strength: 2MG/ML
Dosage Form/Route: INJECTABLE;INJECTION
Application: A063277 | Product #001 | TE Code: AP
Applicant: FRESENIUS KABI USA LLC
Approved: Oct 26, 1995 | RLD: No | RS: No | Type: RX